FAERS Safety Report 5424210-X (Version None)
Quarter: 2007Q3

REPORT INFORMATION
  Report Type: 
  Country: None (occurrence: None)
  Receive Date: 20070731
  Receipt Date: 20070529
  Transmission Date: 20080115
  Serious: No
  Sender: FDA-Public Use
  Company Number: US200705007400

PATIENT
  Age: 77 Year
  Sex: Male

DRUGS (1)
  1. BYETTA [Suspect]
     Indication: TYPE 2 DIABETES MELLITUS
     Dosage: 5 UG, 2/D, SUBCUTANEOUS
     Route: 058
     Dates: start: 20060501

REACTIONS (5)
  - BLOOD GLUCOSE INCREASED [None]
  - DECREASED ACTIVITY [None]
  - EYELID DISORDER [None]
  - MALAISE [None]
  - VISUAL DISTURBANCE [None]
